FAERS Safety Report 14669522 (Version 1)
Quarter: 2018Q1

REPORT INFORMATION
  Report Type: Spontaneous
  Country: US (occurrence: US)
  Receive Date: 20180322
  Receipt Date: 20180322
  Transmission Date: 20180509
  Serious: Yes (Other)
  Sender: FDA-Public Use
  Company Number: US-GLENMARK PHARMACEUTICALS-2018GMK033490

PATIENT
  Age: 63 Year
  Sex: Male

DRUGS (1)
  1. DICLOFENAC SODIUM. [Suspect]
     Active Substance: DICLOFENAC SODIUM
     Indication: OSTEOARTHRITIS
     Dosage: UNK
     Route: 065

REACTIONS (5)
  - Weight decreased [Recovered/Resolved]
  - Gastric ulcer [Recovered/Resolved]
  - Large intestinal stenosis [Recovered/Resolved]
  - Microcytic anaemia [Recovered/Resolved]
  - Large intestinal ulcer [Recovered/Resolved]
